FAERS Safety Report 7570947-6 (Version None)
Quarter: 2011Q2

REPORT INFORMATION
  Report Type: 
  Country: None (occurrence: None)
  Receive Date: 20110624
  Receipt Date: 20110608
  Transmission Date: 20111010
  Serious: No
  Sender: FDA-Public Use
  Company Number: US-B.I. PHARMACEUTICALS,INC./RIDGEFIELD-2011-BP-06392BP

PATIENT
  Sex: Female
  Weight: 63.5 kg

DRUGS (12)
  1. VALIUM [Concomitant]
     Indication: STRESS
     Route: 048
  2. VALTURNA [Concomitant]
     Indication: CARDIAC DISORDER
  3. CARDIZEM [Concomitant]
     Indication: ARRHYTHMIA
     Dosage: 270 MG
     Route: 048
  4. VICODIN ES [Concomitant]
     Indication: PAIN
  5. DIGOXIN [Concomitant]
     Indication: CARDIAC DISORDER
     Dosage: 0.125 MG
     Route: 048
  6. DILTIAZEM [Concomitant]
     Dosage: 180 MG
     Dates: start: 20080301
  7. PRADAXA [Suspect]
     Indication: ATRIAL FIBRILLATION
     Dosage: 300 MG
     Route: 048
     Dates: start: 20101101
  8. TOPROL-XL [Concomitant]
     Indication: HYPERTENSION
     Dosage: 100 MG
     Route: 048
  9. VICODIN ES [Concomitant]
     Indication: BACK DISORDER
     Route: 048
  10. VALIUM [Concomitant]
     Indication: ANXIETY
  11. UNSPECIFIED VITAMINS [Concomitant]
     Indication: ROUTINE HEALTH MAINTENANCE
     Route: 048
  12. VALTURNA [Concomitant]
     Indication: BLOOD PRESSURE
     Route: 048

REACTIONS (4)
  - ABDOMINAL DISCOMFORT [None]
  - DYSPEPSIA [None]
  - OROPHARYNGEAL PAIN [None]
  - LARYNGITIS [None]
